FAERS Safety Report 21649784 (Version 2)
Quarter: 2022Q4

REPORT INFORMATION
  Report Type: Spontaneous
  Country: ES (occurrence: ES)
  Receive Date: 20221128
  Receipt Date: 20221130
  Transmission Date: 20230112
  Serious: Yes (Life-Threatening, Hospitalization, Other)
  Sender: FDA-Public Use
  Company Number: ES-UCBSA-2021033457

PATIENT
  Age: 23 Year
  Sex: Male

DRUGS (18)
  1. BRIVARACETAM [Suspect]
     Active Substance: BRIVARACETAM
     Indication: Status epilepticus
     Dosage: 400 MILLIGRAM, DAILY
  2. VIMPAT [Suspect]
     Active Substance: LACOSAMIDE
     Indication: Status epilepticus
     Dosage: 500 MILLIGRAM, DAILY
  3. KINERET [Suspect]
     Active Substance: ANAKINRA
     Indication: Status epilepticus
     Dosage: AT DAY 28, ANAKINRA AT 5MG/KG EVERY 12 HOURS WAS STARTED
  4. METHYLPREDNISOLONE SODIUM SUCCINATE [Suspect]
     Active Substance: METHYLPREDNISOLONE SODIUM SUCCINATE
     Indication: Status epilepticus
     Dosage: 1 GRAM DAILY, SUCCESSIVELY ADMINISTERED AT DAYS 14,17,20 AND 23RESPECTIVELY
  5. PHENOBARBITAL [Suspect]
     Active Substance: PHENOBARBITAL
     Indication: Status epilepticus
     Dosage: 800 MILLIGRAM, DAILY
  6. VALPROIC ACID [Suspect]
     Active Substance: VALPROIC ACID
     Indication: Status epilepticus
     Dosage: 1500 MILLIGRAM
  7. VALPROIC ACID [Suspect]
     Active Substance: VALPROIC ACID
     Dosage: 3400 MILLIGRAM/DAY
  8. CANNABIDIOL [Suspect]
     Active Substance: CANNABIDIOL
     Indication: Status epilepticus
     Dosage: UNK
  9. CANNABIDIOL [Suspect]
     Active Substance: CANNABIDIOL
     Dosage: 10 MILLIGRAM
  10. TOCILIZUMAB [Suspect]
     Active Substance: TOCILIZUMAB
     Indication: Product used for unknown indication
     Dosage: 8 MG/KG, DAILY
  11. PERAMPANEL [Suspect]
     Active Substance: PERAMPANEL
     Indication: Status epilepticus
     Dosage: 20 MILLIGRAM, DAILY
  12. PERAMPANEL [Suspect]
     Active Substance: PERAMPANEL
     Dosage: 12 MILLIGRAM, DAILY
  13. PHENYTOIN SODIUM [Suspect]
     Active Substance: PHENYTOIN SODIUM
     Indication: Status epilepticus
     Dosage: 800 MILLIGRAM, DAILY
  14. CLONAZEPAM [Suspect]
     Active Substance: CLONAZEPAM
     Indication: Status epilepticus
     Dosage: 3 MILLIGRAM, DAILY
  15. ZONISAMIDE [Suspect]
     Active Substance: ZONISAMIDE
     Indication: Status epilepticus
     Dosage: 200 MILLIGRAM
  16. ZONISAMIDE [Suspect]
     Active Substance: ZONISAMIDE
     Dosage: 500 MILLIGRAM/DAY
  17. HUMAN IMMUNOGLOBULIN G [Suspect]
     Active Substance: HUMAN IMMUNOGLOBULIN G
     Indication: Status epilepticus
     Dosage: 0.4 G/KG/DAY,IV-IG 0.4G/KG/DAY SUCCESSIVELY ADMINISTERED AT DAYS 14, 17, 20 AND 23, RESPECTIVELY
     Route: 042
  18. ANAKINRA [Concomitant]
     Active Substance: ANAKINRA
     Indication: Status epilepticus
     Dosage: UNK

REACTIONS (7)
  - Multiple-drug resistance [Unknown]
  - Neutropenia [Unknown]
  - Seizure [Unknown]
  - Drug ineffective for unapproved indication [Unknown]
  - Product use in unapproved indication [Unknown]
  - Abnormal behaviour [Unknown]
  - Memory impairment [Unknown]
